FAERS Safety Report 6168970-1 (Version None)
Quarter: 2009Q2

REPORT INFORMATION
  Report Type: 
  Country: None (occurrence: None)
  Receive Date: 20090427
  Receipt Date: 20090427
  Transmission Date: 20091009
  Serious: Yes (Other)
  Sender: FDA-Public Use
  Company Number: None

PATIENT
  Age: 5 Year
  Sex: Male
  Weight: 33.1126 kg

DRUGS (1)
  1. ZYRTEC [Suspect]
     Indication: MULTIPLE ALLERGIES
     Dosage: TWO TEASPOONS EVERY 24HRS PO
     Route: 048
     Dates: start: 20090421, end: 20090423

REACTIONS (5)
  - AFFECTIVE DISORDER [None]
  - AGGRESSION [None]
  - AMNESIA [None]
  - CRYING [None]
  - FATIGUE [None]
